FAERS Safety Report 22121518 (Version 3)
Quarter: 2023Q1

REPORT INFORMATION
  Report Type: Report from Study
  Country: US (occurrence: US)
  Receive Date: 20230321
  Receipt Date: 20230330
  Transmission Date: 20230418
  Serious: Yes (Other)
  Sender: FDA-Public Use
  Company Number: US-UCBSA-2023013928

PATIENT
  Sex: Male
  Weight: 43 kg

DRUGS (4)
  1. FINTEPLA [Suspect]
     Active Substance: FENFLURAMINE
     Indication: Severe myoclonic epilepsy of infancy
     Dosage: 5.9 MILLILITER, 2X/DAY (BID)
     Route: 048
  2. FINTEPLA [Suspect]
     Active Substance: FENFLURAMINE
     Dosage: 26 MILLIGRAM, /DAILY (QD), 0.6 MG/KG/DAY
     Dates: start: 20220323
  3. FINTEPLA [Suspect]
     Active Substance: FENFLURAMINE
     Dosage: 0.35 MILLIGRAM/KG/DAY
  4. FINTEPLA [Suspect]
     Active Substance: FENFLURAMINE
     Dosage: 25.96 MILLIGRAM, ONCE DAILY (QD)
     Dates: start: 202205

REACTIONS (2)
  - Tricuspid valve incompetence [Not Recovered/Not Resolved]
  - Mitral valve incompetence [Not Recovered/Not Resolved]
